FAERS Safety Report 8437961-X (Version None)
Quarter: 2012Q2

REPORT INFORMATION
  Report Type: 
  Country: None (occurrence: None)
  Receive Date: 20120614
  Receipt Date: 20120530
  Transmission Date: 20120825
  Serious: Yes (Other)
  Sender: FDA-Public Use
  Company Number: US-AMGEN-USASP2012031567

PATIENT
  Sex: Female

DRUGS (2)
  1. CALCIUM [Concomitant]
     Dosage: UNK UNK, QD
  2. XGEVA [Suspect]
     Indication: PROPHYLAXIS
     Dosage: UNK

REACTIONS (2)
  - HYPOCALCAEMIA [None]
  - MUSCLE SPASMS [None]
